FAERS Safety Report 17226985 (Version 2)
Quarter: 2020Q2

REPORT INFORMATION
  Report Type: Spontaneous
  Country: HR (occurrence: HR)
  Receive Date: 20200103
  Receipt Date: 20200413
  Transmission Date: 20200713
  Serious: Yes (Other)
  Sender: FDA-Public Use
  Company Number: HR-TEVA-2019-HR-1160872

PATIENT
  Age: 47 Year
  Sex: Male
  Weight: 106 kg

DRUGS (1)
  1. LARIBON [Suspect]
     Active Substance: BUPRENORPHINE
     Indication: CAUDA EQUINA SYNDROME
     Dosage: 52.5 MCG
     Route: 062
     Dates: start: 20191119, end: 20191119

REACTIONS (5)
  - Asthenia [Recovered/Resolved]
  - Panic attack [Recovered/Resolved]
  - Vomiting [Recovered/Resolved]
  - Dizziness [Recovered/Resolved]
  - Nausea [Recovered/Resolved]

NARRATIVE: CASE EVENT DATE: 20191119
